FAERS Safety Report 5157228-5 (Version None)
Quarter: 2006Q4

REPORT INFORMATION
  Report Type: 
  Country: None (occurrence: None)
  Receive Date: 20061127
  Receipt Date: 20061117
  Transmission Date: 20070319
  Serious: Yes (Hospitalization, Other)
  Sender: FDA-Public Use
  Company Number: FR-JNJFOC-20061006537

PATIENT
  Sex: Male
  Weight: 81 kg

DRUGS (7)
  1. RISPERDAL CONSTA [Suspect]
     Indication: SCHIZOPHRENIA
     Route: 030
  2. RISPERDAL [Suspect]
     Route: 048
  3. RISPERDAL [Suspect]
     Indication: SCHIZOPHRENIA
     Route: 048
  4. DEPAKOTE [Suspect]
     Indication: DRUG THERAPY
     Route: 048
  5. IMATINIB MESILATE [Concomitant]
     Indication: CHRONIC MYELOID LEUKAEMIA
  6. TERCIAN [Concomitant]
     Route: 048
  7. TERCIAN [Concomitant]
     Indication: PSYCHOTIC DISORDER
     Dosage: 120 DROPS/DAY
     Route: 048

REACTIONS (2)
  - LEUKOPENIA [None]
  - THROMBOCYTOPENIA [None]
